FAERS Safety Report 10927697 (Version 2)
Quarter: 2016Q4

REPORT INFORMATION
  Report Type: Report from Study
  Country: US (occurrence: US)
  Receive Date: 20150319
  Receipt Date: 20161005
  Transmission Date: 20170206
  Serious: Yes (Hospitalization, Other)
  Sender: FDA-Public Use
  Company Number: US-ROCHE-1552359

PATIENT
  Age: 60 Year
  Sex: Female
  Weight: 96.2 kg

DRUGS (4)
  1. CARBOPLATIN. [Suspect]
     Active Substance: CARBOPLATIN
     Indication: ENDOMETRIAL CANCER RECURRENT
     Dosage: LAST DOSE PRIOR TO SAE: 02/MAR/2012?AUC = 6 IV OVER 30 MINUTES ON DAY 1 FOR 6 CYCLES
     Route: 042
     Dates: start: 20111118
  2. PACLITAXEL. [Suspect]
     Active Substance: PACLITAXEL
     Indication: ENDOMETRIAL CANCER RECURRENT
     Dosage: ON DAY 1 * 6 CYCLES, LAST DOSE PRIOR TO SAE: 02/MAR/2012?175 MG/M2 IV OVER 3 HOURS ON DAY 1 FOR 6 CY
     Route: 042
     Dates: start: 20111118
  3. BEVACIZUMAB [Suspect]
     Active Substance: BEVACIZUMAB
     Indication: ENDOMETRIAL CANCER RECURRENT
     Dosage: ON DAY ONE* 6 CYCLES, LAST DOSE PRIOR TO SAE: 19/FEB/2015; 15 MG/KG?15 MG/KG IV OVER 30-90 MINUTES O
     Route: 042
     Dates: start: 20100903
  4. BEVACIZUMAB [Suspect]
     Active Substance: BEVACIZUMAB
     Route: 042
     Dates: start: 20111118

REACTIONS (11)
  - Hypertension [Recovering/Resolving]
  - Device related infection [Recovering/Resolving]
  - Palpitations [Recovering/Resolving]
  - Proteinuria [Unknown]
  - Anaemia [Unknown]
  - Hyperkalaemia [Unknown]
  - Platelet count decreased [Unknown]
  - Angina pectoris [Recovering/Resolving]
  - White blood cell count decreased [Unknown]
  - Blood bilirubin increased [Unknown]
  - Neutrophil count decreased [Unknown]

NARRATIVE: CASE EVENT DATE: 20120315
